FAERS Safety Report 23452828 (Version 1)
Quarter: 2024Q1

REPORT INFORMATION
  Report Type: Spontaneous
  Country: US (occurrence: None)
  Receive Date: 20240129
  Receipt Date: 20240129
  Transmission Date: 20240410
  Serious: No
  Sender: FDA-Public Use
  Company Number: None

PATIENT
  Age: 5 Month
  Sex: Female
  Weight: 5.37 kg

DRUGS (1)
  1. BEYFORTUS [Suspect]
     Active Substance: NIRSEVIMAB-ALIP
     Indication: Immunisation
     Dosage: OTHER FREQUENCY : ONCE;?
     Route: 030

REACTIONS (2)
  - Product administration error [None]
  - Wrong schedule [None]

NARRATIVE: CASE EVENT DATE: 20240125
